FAERS Safety Report 10272552 (Version 1)
Quarter: 2014Q2

REPORT INFORMATION
  Report Type: Spontaneous
  Country: US (occurrence: None)
  Receive Date: 20140627
  Receipt Date: 20140627
  Transmission Date: 20141212
  Serious: Yes (Hospitalization)
  Sender: FDA-Public Use
  Company Number: None

PATIENT
  Age: 57 Year
  Sex: Male
  Weight: 76 kg

DRUGS (1)
  1. LISINOPRIL [Suspect]
     Route: 048
     Dates: end: 20140408

REACTIONS (2)
  - Swollen tongue [None]
  - Angioedema [None]
